FAERS Safety Report 5319108-1 (Version None)
Quarter: 2007Q2

REPORT INFORMATION
  Report Type: 
  Country: None (occurrence: None)
  Receive Date: 20070508
  Receipt Date: 20070504
  Transmission Date: 20071010
  Serious: Yes (Hospitalization, Disabling)
  Sender: FDA-Public Use
  Company Number: A0650124A

PATIENT
  Age: 3 Year
  Sex: Female
  Weight: 16 kg

DRUGS (4)
  1. CEFUROXIME [Suspect]
     Indication: BRONCHOPNEUMONIA
     Dosage: 5ML TWICE PER DAY
     Route: 048
     Dates: start: 20070427
  2. CELESTONE [Concomitant]
     Dosage: 2.5ML THREE TIMES PER DAY
     Dates: start: 20070426, end: 20070501
  3. ATROVENT [Concomitant]
     Dosage: 5DROP THREE TIMES PER DAY
     Dates: start: 20070427, end: 20070501
  4. BEROTEC [Concomitant]
     Dosage: 2DROP THREE TIMES PER DAY
     Dates: start: 20070427, end: 20070501

REACTIONS (2)
  - ILL-DEFINED DISORDER [None]
  - URINARY INCONTINENCE [None]
